FAERS Safety Report 6932540-5 (Version None)
Quarter: 2010Q3

REPORT INFORMATION
  Report Type: 
  Country: None (occurrence: None)
  Receive Date: 20100819
  Receipt Date: 20100809
  Transmission Date: 20110219
  Serious: Yes (Death, Hospitalization, Other)
  Sender: FDA-Public Use
  Company Number: US-PURDUE-USA-2010-0044536

PATIENT
  Sex: Female
  Weight: 62.132 kg

DRUGS (26)
  1. OXYCONTIN [Suspect]
     Indication: PRODUCT USED FOR UNKNOWN INDICATION
     Dosage: 20 MG, Q12H
     Route: 048
     Dates: start: 20100528, end: 20100610
  2. OXYCODONE HCL [Suspect]
     Indication: BREAKTHROUGH PAIN
     Dosage: 10 MG, QID PRN
     Route: 048
     Dates: start: 20100528, end: 20100610
  3. NITROGLYCERIN [Concomitant]
     Dosage: 0.4 MG, PRN
     Route: 060
     Dates: start: 20100319
  4. ZEBETA [Concomitant]
     Dosage: 5 MG, DAILY
     Route: 048
     Dates: start: 20100408
  5. DILTIAZEM HCL [Concomitant]
     Dosage: 240 MG, DAILY
     Route: 048
     Dates: start: 20100408
  6. PREVACID [Concomitant]
     Dosage: 30 MG, BID
     Route: 048
     Dates: start: 20081218
  7. CELEXA [Concomitant]
     Dosage: 40 MG, DAILY
     Route: 048
     Dates: start: 20071231
  8. ADVAIR DISKUS 100/50 [Concomitant]
     Dosage: 1 PUFF, BID
     Route: 055
     Dates: start: 20080508
  9. SPIRIVA [Concomitant]
     Dosage: 18 MCG, DAILY
     Route: 055
     Dates: start: 20100119
  10. ALBUTEROL [Concomitant]
     Indication: WHEEZING
     Dosage: 2 PUFF, Q4H PRN
     Route: 055
     Dates: start: 20080828
  11. ALBUTEROL SULFATE [Concomitant]
     Dosage: 3 ML, QID
     Route: 055
     Dates: start: 20091130
  12. PRAVASTATIN SODIUM [Concomitant]
     Indication: BLOOD CHOLESTEROL
     Dosage: 1 TABLET, PM
     Route: 048
     Dates: start: 20090813
  13. ZETIA [Concomitant]
     Dosage: 10 MG, DAILY
     Route: 048
     Dates: start: 20090507
  14. VITAMIN B-12 [Concomitant]
     Dosage: 100 MCG, DAILY
     Dates: start: 20090323
  15. STRESS B COMPLEX                   /01742401/ [Concomitant]
     Dosage: 1 TABLET, DAILY
     Route: 048
     Dates: start: 20071231
  16. VITAMIN D3 [Concomitant]
     Dosage: 1000 UNIT, DAILY
     Route: 048
     Dates: start: 20081111
  17. TRIAMCINOLONE ACETONIDE [Concomitant]
     Indication: RASH
     Dosage: 1 APPLIC, BID
     Dates: start: 20091008
  18. ASMANEX TWISTHALER [Concomitant]
     Dosage: 220 MCG, BID
     Route: 055
     Dates: start: 20090804
  19. FLEXERIL [Concomitant]
     Indication: MUSCLE SPASMS
     Dosage: 10 MG, TID PRN
     Route: 048
     Dates: start: 20091130
  20. LISINOPRIL [Concomitant]
     Dosage: 40 MG, DAILY
     Dates: start: 20100119
  21. OXYGEN [Concomitant]
     Dosage: 2 L, DAILY
     Route: 055
     Dates: start: 20100126
  22. PREDNISONE [Concomitant]
     Dosage: 10 MG, DAILY
     Route: 048
     Dates: start: 20100604
  23. FERROUS SULFATE [Concomitant]
     Dosage: 325 MG, DAILY
     Route: 048
     Dates: start: 20100322
  24. CALCIUM CITRATE [Concomitant]
     Dosage: 1 TABLET, DAILY
     Route: 048
     Dates: start: 20100506
  25. BONIVA [Concomitant]
     Dosage: 150 MG, UNK
     Route: 048
     Dates: start: 20100506
  26. CLOTRIMAZOLE [Concomitant]
     Indication: RASH
     Dosage: 1 APPLIC, BID
     Dates: start: 20100607

REACTIONS (5)
  - ALCOHOL WITHDRAWAL SYNDROME [None]
  - CONFUSIONAL STATE [None]
  - HALLUCINATION, VISUAL [None]
  - HYPOXIA [None]
  - URINARY TRACT INFECTION [None]
